FAERS Safety Report 16928916 (Version 1)
Quarter: 2019Q4

REPORT INFORMATION
  Report Type: Spontaneous
  Country: GB (occurrence: GB)
  Receive Date: 20191017
  Receipt Date: 20191017
  Transmission Date: 20200122
  Serious: Yes (Life-Threatening, Hospitalization)
  Sender: FDA-Public Use
  Company Number: GB-TEVA-2019-GB-1122960

PATIENT
  Age: 76 Year
  Sex: Female
  Weight: 58 kg

DRUGS (3)
  1. ACCRETE D3 [Concomitant]
     Active Substance: CALCIUM CARBONATE\CHOLECALCIFEROL
     Dosage: 2 DOSAGE FORMS PER DAY
  2. COZAAR COMP [Concomitant]
     Active Substance: HYDROCHLOROTHIAZIDE\LOSARTAN POTASSIUM
     Dosage: 100/12.5MG
  3. NITROFURANTOIN. [Suspect]
     Active Substance: NITROFURANTOIN
     Indication: PROPHYLAXIS URINARY TRACT INFECTION
     Dosage: AT NIGHT, 100 MG PER DAY
     Route: 048
     Dates: start: 20000101, end: 20190705

REACTIONS (2)
  - Pulmonary fibrosis [Not Recovered/Not Resolved]
  - Pneumonitis [Unknown]
